FAERS Safety Report 6403516-1 (Version None)
Quarter: 2009Q4

REPORT INFORMATION
  Report Type: 
  Country: None (occurrence: None)
  Receive Date: 20091016
  Receipt Date: 20091005
  Transmission Date: 20100525
  Serious: Yes (Death, Hospitalization, Other)
  Sender: FDA-Public Use
  Company Number: ZA-PFIZER INC-2009267216

PATIENT
  Age: 18 Year

DRUGS (5)
  1. SUNITINIB MALATE [Suspect]
     Indication: HEPATIC NEOPLASM MALIGNANT
     Dosage: 25 MG, 1X/DAY
     Route: 048
     Dates: start: 20090728, end: 20090908
  2. LOPERAMIDE HYDROCHLORIDE [Concomitant]
     Indication: DIARRHOEA
     Dosage: 2 UNK, 3X/DAY
     Dates: start: 20090812
  3. METOCLOPRAMIDE HYDROCHLORIDE [Concomitant]
     Indication: VOMITING
     Dosage: 10 MG, 3X/DAY
     Dates: start: 20090812
  4. LACSON [Concomitant]
     Indication: CONSTIPATION
     Dosage: 10 ML, 3X/DAY
     Dates: start: 20090821
  5. BUSCOPAN [Concomitant]
     Indication: VOMITING
     Dosage: 10 MG, 3X/DAY
     Dates: start: 20090812

REACTIONS (3)
  - DELIRIUM [None]
  - DISEASE PROGRESSION [None]
  - HEPATIC NEOPLASM MALIGNANT [None]
